FAERS Safety Report 11636846 (Version 1)
Quarter: 2015Q4

REPORT INFORMATION
  Report Type: Spontaneous
  Country: US (occurrence: None)
  Receive Date: 20151015
  Receipt Date: 20151015
  Transmission Date: 20160304
  Serious: Yes (Disabling)
  Sender: FDA-Public Use
  Company Number: None

PATIENT
  Age: 21 Month
  Sex: Male
  Weight: 13.61 kg

DRUGS (2)
  1. NOVOLOG [Suspect]
     Active Substance: INSULIN ASPART
     Indication: TYPE 1 DIABETES MELLITUS
     Dosage: 17 UNITS/DAY
     Route: 058
     Dates: start: 20080221, end: 20150415
  2. INSULIN PUMP [Concomitant]
     Active Substance: INSULIN NOS

REACTIONS (4)
  - Anxiety [None]
  - Irritability [None]
  - Disturbance in attention [None]
  - Aggression [None]

NARRATIVE: CASE EVENT DATE: 20130924
